FAERS Safety Report 5397847-4 (Version None)
Quarter: 2007Q3

REPORT INFORMATION
  Report Type: 
  Country: None (occurrence: None)
  Receive Date: 20070724
  Receipt Date: 20070724
  Transmission Date: 20080115
  Serious: Yes (Hospitalization)
  Sender: FDA-Public Use
  Company Number: None

PATIENT
  Sex: Male

DRUGS (8)
  1. REVLIMID [Suspect]
     Indication: MULTIPLE MYELOMA
     Dosage: 5MG DAILY PO
     Route: 048
  2. ZOLPIDEM TARTRATE [Concomitant]
  3. TEMAZEPAM [Concomitant]
  4. SPIRONOLACTONE [Concomitant]
  5. GABAPENTIN [Concomitant]
  6. ZETIA [Concomitant]
  7. PLAVIX [Concomitant]
  8. OMEPRAZOLE [Concomitant]

REACTIONS (1)
  - FOOD POISONING [None]
